FAERS Safety Report 10272793 (Version 1)
Quarter: 2014Q3

REPORT INFORMATION
  Report Type: Report from Study
  Country: EC (occurrence: EC)
  Receive Date: 20140702
  Receipt Date: 20140702
  Transmission Date: 20150326
  Serious: No
  Sender: FDA-Public Use
  Company Number: PHHY2014EC081218

PATIENT
  Sex: Male

DRUGS (2)
  1. NILOTINIB [Suspect]
     Active Substance: NILOTINIB
     Dosage: 800 MG (4 UNITS OF 200 MG), DAILY
     Route: 048
  2. NILOTINIB [Suspect]
     Active Substance: NILOTINIB
     Indication: CHRONIC MYELOID LEUKAEMIA
     Dosage: 400 MG (2 UNITS OF 200 MG), DAILY
     Route: 048
     Dates: start: 2012

REACTIONS (2)
  - Oncologic complication [Unknown]
  - Overdose [Unknown]
